FAERS Safety Report 10332876 (Version 1)
Quarter: 2014Q3

REPORT INFORMATION
  Report Type: Spontaneous
  Country: GB (occurrence: GB)
  Receive Date: 20140722
  Receipt Date: 20140722
  Transmission Date: 20150326
  Serious: Yes (Hospitalization)
  Sender: FDA-Public Use
  Company Number: PHHY2014GB086814

PATIENT
  Age: 39 Year
  Sex: Female

DRUGS (3)
  1. METFORMIN [Suspect]
     Active Substance: METFORMIN HYDROCHLORIDE
     Indication: DIABETES MELLITUS
     Dosage: 500 MG, BID
     Route: 048
  2. NOVORAPID [Concomitant]
     Active Substance: INSULIN ASPART
     Indication: DIABETES MELLITUS
     Dosage: 8 U, TID
  3. LEVEMIR [Concomitant]
     Active Substance: INSULIN DETEMIR
     Indication: DIABETES MELLITUS
     Dosage: 15 U, QD

REACTIONS (12)
  - Diarrhoea [Recovered/Resolved]
  - Venous pressure jugular [Unknown]
  - Hyperglycaemia [Unknown]
  - Diabetic ketoacidosis [Recovered/Resolved]
  - Malaise [Unknown]
  - Drug interaction [Unknown]
  - Oral disorder [Unknown]
  - Hyperkalaemia [Unknown]
  - Vomiting [Recovered/Resolved]
  - Dehydration [Unknown]
  - Tongue dry [Unknown]
  - General physical health deterioration [Unknown]
